FAERS Safety Report 5373960-2 (Version None)
Quarter: 2007Q2

REPORT INFORMATION
  Report Type: 
  Country: None (occurrence: None)
  Receive Date: 20070628
  Receipt Date: 20070613
  Transmission Date: 20071010
  Serious: Yes (Death, Life-Threatening, Hospitalization, Disabling)
  Sender: FDA-Public Use
  Company Number: US-ELI_LILLY_AND_COMPANY-US200706003155

PATIENT
  Age: 8 Year
  Sex: Male
  Weight: 81.8 kg

DRUGS (4)
  1. SOMATROPIN [Suspect]
     Indication: BLOOD GROWTH HORMONE DECREASED
     Dosage: 0.8 MG, OTHER
     Route: 058
     Dates: start: 20030527, end: 20060901
  2. DDAVP (NEEDS NO REFRIGERATION) [Concomitant]
     Indication: DIABETES INSIPIDUS
     Dates: start: 20060301, end: 20061116
  3. LEVOXYL [Concomitant]
     Dates: start: 20020301, end: 20021116
  4. HYDROCORTISONE [Concomitant]
     Dates: start: 20020301, end: 20061116

REACTIONS (1)
  - CRANIOPHARYNGIOMA [None]
